FAERS Safety Report 12721385 (Version 1)
Quarter: 2016Q3

REPORT INFORMATION
  Report Type: Spontaneous
  Country: US (occurrence: US)
  Receive Date: 20160907
  Receipt Date: 20160907
  Transmission Date: 20161109
  Serious: Yes (Hospitalization)
  Sender: FDA-Public Use
  Company Number: US-SA-2015SA161632

PATIENT
  Age: 36 Year
  Sex: Female
  Weight: 80.28 kg

DRUGS (20)
  1. LEMTRADA [Suspect]
     Active Substance: ALEMTUZUMAB
     Indication: MULTIPLE SCLEROSIS
     Route: 041
     Dates: start: 20150928, end: 20151002
  2. BENADRYL [Concomitant]
     Active Substance: DIPHENHYDRAMINE HYDROCHLORIDE
     Dosage: TAKE 1 TAB BEDTIME TAKE 25 MG AT BEDTIME ON 9/27, TAKE 25-50 MG IN THE EVENING AS NEEDED FOR RASH.
     Route: 048
  3. FLUOCINOLONE ACETONIDE. [Concomitant]
     Active Substance: FLUOCINOLONE ACETONIDE
  4. GABAPENTIN. [Concomitant]
     Active Substance: GABAPENTIN
     Dosage: TAKE 1-3 TABS
     Route: 048
  5. LORAZEPAM. [Concomitant]
     Active Substance: LORAZEPAM
     Indication: ANXIETY
     Route: 048
  6. GABAPENTIN. [Concomitant]
     Active Substance: GABAPENTIN
     Dosage: TAKE 1 CAPSULE FIVE TIMES DAILY
     Route: 048
  7. BACLOFEN. [Concomitant]
     Active Substance: BACLOFEN
     Dosage: TAKE 2 IN AM, ONE TABS AT NOON, 4PM AND 8PM
     Route: 048
  8. EPIPEN [Concomitant]
     Active Substance: EPINEPHRINE
     Route: 030
  9. ACYCLOVIR. [Concomitant]
     Active Substance: ACYCLOVIR
     Route: 048
  10. ADVIL [Concomitant]
     Active Substance: IBUPROFEN
  11. ZOLOFT [Concomitant]
     Active Substance: SERTRALINE HYDROCHLORIDE
     Route: 048
  12. PROTOPIC [Concomitant]
     Active Substance: TACROLIMUS
     Dosage: APPLY AS DIRECTED 1-2 TIMES DAY
  13. TOVIAZ [Concomitant]
     Active Substance: FESOTERODINE FUMARATE
     Route: 048
  14. MODAFINIL. [Concomitant]
     Active Substance: MODAFINIL
     Route: 048
  15. VITAMIN D [Concomitant]
     Active Substance: CHOLECALCIFEROL
  16. ALBUTEROL. [Concomitant]
     Active Substance: ALBUTEROL
     Dosage: 2PFF Q6H, PRN
  17. AMITIZA [Concomitant]
     Active Substance: LUBIPROSTONE
     Route: 048
  18. CIPROFLOXACIN HYDROCHLORIDE. [Concomitant]
     Active Substance: CIPROFLOXACIN HYDROCHLORIDE
     Route: 048
  19. ELIDEL [Concomitant]
     Active Substance: PIMECROLIMUS
  20. AMITRIPTYLINE HYDROCHLORIDE. [Concomitant]
     Active Substance: AMITRIPTYLINE HYDROCHLORIDE
     Dosage: AT BEDTIME
     Route: 048

REACTIONS (2)
  - Haemolysis [Unknown]
  - Asthma [Recovered/Resolved]

NARRATIVE: CASE EVENT DATE: 201510
